FAERS Safety Report 21264108 (Version 2)
Quarter: 2022Q3

REPORT INFORMATION
  Report Type: Spontaneous
  Country: US (occurrence: US)
  Receive Date: 20220829
  Receipt Date: 20220906
  Transmission Date: 20221027
  Serious: No
  Sender: FDA-Public Use
  Company Number: US-BRISTOL-MYERS SQUIBB COMPANY-2022-096920

PATIENT
  Age: 57 Year
  Sex: Male

DRUGS (2)
  1. SPRYCEL [Suspect]
     Active Substance: DASATINIB
     Indication: Chronic myeloid leukaemia
     Route: 048
     Dates: start: 20220819
  2. SPRYCEL [Suspect]
     Active Substance: DASATINIB
     Dosage: DAILY
     Route: 048
     Dates: start: 20220817

REACTIONS (4)
  - Nausea [Not Recovered/Not Resolved]
  - Fatigue [Recovering/Resolving]
  - Headache [Recovering/Resolving]
  - Diarrhoea [Unknown]

NARRATIVE: CASE EVENT DATE: 20220819
